FAERS Safety Report 20602897 (Version 1)
Quarter: 2022Q1

REPORT INFORMATION
  Report Type: Spontaneous
  Country: US (occurrence: US)
  Receive Date: 20220316
  Receipt Date: 20220316
  Transmission Date: 20220423
  Serious: Yes (Other)
  Sender: FDA-Public Use
  Company Number: US-TOPROL-2022000088

PATIENT
  Age: 71 Year
  Sex: Male
  Weight: 70.7 kg

DRUGS (4)
  1. TOPROL XL [Suspect]
     Active Substance: METOPROLOL SUCCINATE
     Indication: Arrhythmia
     Dosage: AT LUNCH TIME, STARTING 20 YEARS AGO
     Route: 065
  2. EVUSHELD [Suspect]
     Active Substance: CILGAVIMAB\TIXAGEVIMAB
     Indication: Product used for unknown indication
     Route: 030
     Dates: start: 20220211
  3. EVUSHELD [Suspect]
     Active Substance: CILGAVIMAB\TIXAGEVIMAB
     Indication: Product used for unknown indication
     Route: 030
     Dates: start: 20220302
  4. FLUTICASONE [Concomitant]
     Active Substance: FLUTICASONE
     Indication: Seasonal allergy
     Route: 045

REACTIONS (7)
  - Atrial fibrillation [Unknown]
  - Anxiety [Unknown]
  - Heart rate increased [Unknown]
  - Seasonal allergy [Unknown]
  - Ventricular extrasystoles [Unknown]
  - Supraventricular extrasystoles [Unknown]
  - Product use in unapproved indication [Unknown]
